FAERS Safety Report 11394870 (Version 1)
Quarter: 2015Q3

REPORT INFORMATION
  Report Type: Spontaneous
  Country: JP (occurrence: JP)
  Receive Date: 20150819
  Receipt Date: 20150819
  Transmission Date: 20151125
  Serious: Yes (Hospitalization)
  Sender: FDA-Public Use
  Company Number: JP-PFIZER INC-2015238031

PATIENT
  Age: 83 Year
  Sex: Female

DRUGS (1)
  1. CORTRIL [Suspect]
     Active Substance: HYDROCORTISONE
     Dosage: 20 MG DAILY (15 MG IN THE MORNING AND 5 MG IN THE EVENING)
     Route: 048

REACTIONS (1)
  - Bronchitis [Unknown]
